FAERS Safety Report 4984042-3 (Version None)
Quarter: 2006Q1

REPORT INFORMATION
  Report Type: 
  Country: None (occurrence: None)
  Receive Date: 20060301
  Receipt Date: 20051018
  Transmission Date: 20060701
  Serious: No
  Sender: FDA-Public Use
  Company Number: S05-USA-04769-01

PATIENT

DRUGS (3)
  1. NAMENDA [Suspect]
  2. EXELON [Suspect]
  3. REMERON [Suspect]

REACTIONS (1)
  - RASH [None]
